FAERS Safety Report 10089690 (Version 1)
Quarter: 2014Q2

REPORT INFORMATION
  Report Type: Spontaneous
  Country: US (occurrence: US)
  Receive Date: 20140421
  Receipt Date: 20140421
  Transmission Date: 20141212
  Serious: Yes (Other)
  Sender: FDA-Public Use
  Company Number: US-PFIZER INC-2014108046

PATIENT
  Age: 6 Decade
  Sex: Female

DRUGS (1)
  1. LYRICA [Suspect]
     Dosage: 200 MG, 3X/DAY

REACTIONS (1)
  - Drug dependence [Unknown]
